FAERS Safety Report 9707757 (Version 1)
Quarter: 2013Q4

REPORT INFORMATION
  Report Type: Spontaneous
  Country: JP (occurrence: JP)
  Receive Date: 20131125
  Receipt Date: 20131125
  Transmission Date: 20140711
  Serious: Yes (Hospitalization)
  Sender: FDA-Public Use
  Company Number: JP-UCBSA-103816

PATIENT
  Age: 63 Year
  Sex: Female

DRUGS (4)
  1. CIMZIA [Suspect]
     Indication: RHEUMATOID ARTHRITIS
     Dosage: 200MG SYRINGE
     Route: 058
     Dates: start: 20130903, end: 20131011
  2. METHOTREXATE [Suspect]
     Indication: RHEUMATOID ARTHRITIS
     Dosage: 10 MG
  3. ETANERCEPT [Concomitant]
  4. ABATACEPT [Concomitant]

REACTIONS (1)
  - Pneumocystis jirovecii pneumonia [Recovering/Resolving]
